FAERS Safety Report 15253459 (Version 3)
Quarter: 2018Q3

REPORT INFORMATION
  Report Type: Spontaneous
  Country: PT (occurrence: PT)
  Receive Date: 20180808
  Receipt Date: 20180906
  Transmission Date: 20181010
  Serious: Yes (Other)
  Sender: FDA-Public Use
  Company Number: PT-CONCORDIA PHARMACEUTICALS INC.-E2B_00015813

PATIENT
  Age: 1 Month
  Sex: Female
  Weight: 2.4 kg

DRUGS (19)
  1. PREDNISOLONE. [Suspect]
     Active Substance: PREDNISOLONE
     Dosage: UNK UNK, 1X/DAY
     Route: 064
  2. NIFEDIPINE. [Suspect]
     Active Substance: NIFEDIPINE
     Indication: HYPERTENSION
     Route: 064
  3. PANTOPRAZOLE [Suspect]
     Active Substance: PANTOPRAZOLE
     Dosage: UNK UNK, 1X/DAY?MOTHER DOSE 20 MG, QD
     Route: 064
  4. PREDNISOLONE. [Suspect]
     Active Substance: PREDNISOLONE
     Dosage: MOTHER DOSE 40 MG, QD
     Route: 064
  5. ELTROMBOPAG [Suspect]
     Active Substance: ELTROMBOPAG
     Indication: THROMBOCYTOPENIC PURPURA
     Dosage: 12.5 MG, 1X/DAY
     Route: 064
     Dates: start: 20170804, end: 20170814
  6. PREDNISOLONE. [Suspect]
     Active Substance: PREDNISOLONE
     Dosage: UNK UNK, 1X/DAY
     Route: 064
  7. PREDNISOLONE. [Suspect]
     Active Substance: PREDNISOLONE
     Dosage: UNK UNK, 1X/DAY?MOTHER DOSE 120 MG, QD
     Route: 064
  8. PREDNISOLONE. [Suspect]
     Active Substance: PREDNISOLONE
     Dosage: UNK UNK, 1X/DAY?MOTHER DOSE 80 MG, QD
     Route: 064
  9. ELTROMBOPAG [Suspect]
     Active Substance: ELTROMBOPAG
     Dosage: 25 MG, 1X/DAY
     Route: 064
     Dates: start: 20170731, end: 2017
  10. DEXAMETHASONE. [Suspect]
     Active Substance: DEXAMETHASONE
     Dosage: UNK UNK, 4X/DAY?MOTHER DOSE 6 MG, QID
     Route: 064
  11. METHYLPREDNISOLONE. [Suspect]
     Active Substance: METHYLPREDNISOLONE
     Dosage: 90 MG, 1X/DAY
     Route: 064
  12. ELTROMBOPAG [Suspect]
     Active Substance: ELTROMBOPAG
     Dosage: 50 MG, 1X/DAY
     Route: 064
     Dates: start: 20170718, end: 201707
  13. PREDNISOLONE. [Suspect]
     Active Substance: PREDNISOLONE
     Dosage: UNK UNK, 1X/DAY?MOTHER DOSE 160 MG, QD
     Route: 064
  14. PREDNISOLONE. [Suspect]
     Active Substance: PREDNISOLONE
     Dosage: UNK UNK, 1X/DAY
     Route: 064
  15. AZATHIOPRIN [Suspect]
     Active Substance: AZATHIOPRINE
     Indication: THROMBOCYTOPENIC PURPURA
     Dosage: 150 MG/KG, 1X/DAY (1MG/KG)
     Route: 064
     Dates: start: 20170712, end: 20170731
  16. PREDNISOLONE. [Suspect]
     Active Substance: PREDNISOLONE
     Dosage: UNK UNK, 1X/DAY?MOTHER DOSE 120 MG, QD
     Route: 064
  17. PREDNISOLONE. [Suspect]
     Active Substance: PREDNISOLONE
     Dosage: UNK UNK, 1X/DAY?MOTHER DOSE 80 MG, QD
     Route: 064
  18. PREDNISOLONE. [Suspect]
     Active Substance: PREDNISOLONE
     Dosage: UNK UNK, 1X/DAY
     Route: 064
  19. ENOXAPARIN [Suspect]
     Active Substance: ENOXAPARIN
     Indication: THROMBOSIS PROPHYLAXIS
     Dosage: 120 MG, 1X/DAY
     Route: 064

REACTIONS (4)
  - Foetal exposure during delivery [Unknown]
  - Jaundice neonatal [Unknown]
  - Maternal exposure during pregnancy [Unknown]
  - Premature baby [Unknown]
